FAERS Safety Report 6295234-8 (Version None)
Quarter: 2009Q3

REPORT INFORMATION
  Report Type: 
  Country: None (occurrence: None)
  Receive Date: 20090730
  Receipt Date: 20090717
  Transmission Date: 20100115
  Serious: Yes (Hospitalization)
  Sender: FDA-Public Use
  Company Number: MSTR-NO-0809S-0061

PATIENT
  Age: 77 Year
  Sex: Male
  Weight: 44.9 kg

DRUGS (2)
  1. METASTRON [Suspect]
     Indication: METASTATIC PAIN
     Dosage: SINGLE DOSE,
     Dates: start: 20080214, end: 20080214
  2. ZOLEDRONIC ACID [Concomitant]

REACTIONS (5)
  - ACTIVITIES OF DAILY LIVING IMPAIRED [None]
  - ANAEMIA [None]
  - CONDITION AGGRAVATED [None]
  - DELIRIUM [None]
  - PROSTATE CANCER [None]
